FAERS Safety Report 4276734-9 (Version None)
Quarter: 2004Q1

REPORT INFORMATION
  Report Type: 
  Country: None (occurrence: None)
  Receive Date: 20040120
  Receipt Date: 20040108
  Transmission Date: 20041129
  Serious: Yes (Life-Threatening)
  Sender: FDA-Public Use
  Company Number: K200301197

PATIENT
  Age: 52 Year
  Sex: Male

DRUGS (6)
  1. ALTACE [Suspect]
     Indication: HYPERTENSION
     Dosage: QD,ORAL
     Route: 048
     Dates: start: 20010101, end: 20030122
  2. PIRETANIDE (PIRETANIDE) [Suspect]
     Indication: HYPERTENSION
     Dosage: QD,ORAL
     Route: 048
     Dates: start: 20010101, end: 20030122
  3. MOXONIDINE (MOXONIDINE) [Concomitant]
  4. THEOPHYLLINE [Concomitant]
  5. APSOMOL (SALBUTAMOL) [Concomitant]
  6. BUDESONIDE (BUDESONIDE) [Concomitant]

REACTIONS (6)
  - ASTHMA [None]
  - BRONCHITIS [None]
  - COUGH [None]
  - OBSTRUCTIVE AIRWAYS DISORDER [None]
  - OEDEMA MUCOSAL [None]
  - SLEEP APNOEA SYNDROME [None]
